FAERS Safety Report 8738255 (Version 2)
Quarter: 2012Q4

REPORT INFORMATION
  Report Type: 
  Country: US (occurrence: US)
  Receive Date: 20120823
  Receipt Date: 20121001
  Transmission Date: 20130627
  Serious: No
  Sender: FDA-Public Use
  Company Number: US-009507513-1207USA011708

PATIENT
  Age: 27 Year
  Sex: Female

DRUGS (1)
  1. NUVARING [Suspect]
     Dosage: 0.015/0.12MG, 3 STANDARD DOSES OF 1
     Dates: start: 20120301

REACTIONS (2)
  - Device expulsion [Unknown]
  - No adverse event [Unknown]
